FAERS Safety Report 13412721 (Version 4)
Quarter: 2024Q2

REPORT INFORMATION
  Report Type: Spontaneous
  Country: US (occurrence: US)
  Receive Date: 20170406
  Receipt Date: 20240404
  Transmission Date: 20240716
  Serious: Yes (Other)
  Sender: FDA-Public Use
  Company Number: US-JNJFOC-20170307930

PATIENT
  Sex: Male

DRUGS (8)
  1. RISPERDAL [Suspect]
     Active Substance: RISPERIDONE
     Indication: Oppositional defiant disorder
     Route: 048
     Dates: start: 19980527
  2. RISPERDAL [Suspect]
     Active Substance: RISPERIDONE
     Indication: Post-traumatic stress disorder
     Route: 048
     Dates: start: 20070307
  3. RISPERDAL [Suspect]
     Active Substance: RISPERIDONE
     Indication: Depression
     Route: 048
     Dates: end: 2012
  4. RISPERDAL [Suspect]
     Active Substance: RISPERIDONE
     Indication: Psychotic disorder
  5. INVEGA [Suspect]
     Active Substance: PALIPERIDONE
     Indication: Oppositional defiant disorder
     Dosage: VARYING DOSES OF 3 MG AND 6 MG
     Route: 048
     Dates: start: 20070307
  6. INVEGA [Suspect]
     Active Substance: PALIPERIDONE
     Indication: Post-traumatic stress disorder
  7. INVEGA [Suspect]
     Active Substance: PALIPERIDONE
     Indication: Depression
  8. INVEGA [Suspect]
     Active Substance: PALIPERIDONE
     Indication: Psychotic disorder

REACTIONS (2)
  - Gynaecomastia [Unknown]
  - Emotional distress [Unknown]
